FAERS Safety Report 6343752-6 (Version None)
Quarter: 2009Q3

REPORT INFORMATION
  Report Type: 
  Country: None (occurrence: None)
  Receive Date: 20090908
  Receipt Date: 20090901
  Transmission Date: 20100115
  Serious: Yes (Hospitalization)
  Sender: FDA-Public Use
  Company Number: B0565324A

PATIENT
  Sex: Female

DRUGS (7)
  1. LAMICTAL [Suspect]
     Indication: BIPOLAR DISORDER
     Dosage: 50MG PER DAY
     Route: 048
     Dates: start: 20080325, end: 20080419
  2. TRUXAL [Suspect]
     Indication: ANXIETY
     Dosage: 30MG PER DAY
     Route: 048
     Dates: end: 20080416
  3. ZYPREXA [Suspect]
     Indication: HYPOMANIA
     Dosage: 15MG PER DAY
     Route: 048
     Dates: start: 20080313, end: 20080412
  4. HEMOFER [Concomitant]
     Route: 065
  5. MULTI-VITAMINS [Concomitant]
     Route: 065
  6. TRIOBE [Concomitant]
     Route: 065
     Dates: start: 20080415, end: 20080416
  7. BUSPAR [Concomitant]
     Indication: ANXIETY
     Dosage: 40MG PER DAY
     Route: 065

REACTIONS (2)
  - NEUROLEPTIC MALIGNANT SYNDROME [None]
  - RASH MACULO-PAPULAR [None]
